FAERS Safety Report 7001355-4 (Version None)
Quarter: 2010Q3

REPORT INFORMATION
  Report Type: 
  Country: None (occurrence: None)
  Receive Date: 20100920
  Receipt Date: 20100512
  Transmission Date: 20110219
  Serious: Yes (Other)
  Sender: FDA-Public Use
  Company Number: US-ASTRAZENECA-2010SE21753

PATIENT
  Age: 56 Year
  Sex: Male
  Weight: 104.3 kg

DRUGS (7)
  1. SEROQUEL [Suspect]
     Indication: BIPOLAR DISORDER
     Dosage: 200 MG THREE TIMES A DAY AND 400 MG AT NIGHT
     Route: 048
     Dates: start: 20100201, end: 20100501
  2. SEROQUEL [Suspect]
     Dosage: 200 MG AT NIGHT
     Route: 048
     Dates: start: 20100501
  3. LISINOPRIL [Suspect]
     Route: 048
  4. CITALOPRAM HYDROBROMIDE [Concomitant]
  5. WARFARIN [Concomitant]
  6. DIGOXIN [Concomitant]
  7. VALIUM [Concomitant]

REACTIONS (6)
  - ADVERSE DRUG REACTION [None]
  - AGITATION [None]
  - DIARRHOEA [None]
  - HEART RATE INCREASED [None]
  - SUICIDAL IDEATION [None]
  - TREMOR [None]
